FAERS Safety Report 13587934 (Version 3)
Quarter: 2017Q3

REPORT INFORMATION
  Report Type: Spontaneous
  Country: IT (occurrence: IT)
  Receive Date: 20170527
  Receipt Date: 20170703
  Transmission Date: 20171127
  Serious: Yes (Life-Threatening, Hospitalization, Other)
  Sender: FDA-Public Use
  Company Number: IT-ACCORD-051904

PATIENT
  Age: 72 Year
  Sex: Female
  Weight: 79 kg

DRUGS (5)
  1. CARBOPLATIN ACCORD [Suspect]
     Active Substance: CARBOPLATIN
     Indication: BREAST CANCER
     Route: 042
     Dates: start: 20170111, end: 20170324
  2. DOCETAXEL SANDOZ [Suspect]
     Active Substance: DOCETAXEL
     Indication: BREAST CANCER
     Route: 042
     Dates: start: 20170111, end: 20170324
  3. ONDANSETRON HIKMA [Concomitant]
     Active Substance: ONDANSETRON
     Route: 042
     Dates: start: 20170111, end: 20170324
  4. DEXAMETHASONE. [Concomitant]
     Active Substance: DEXAMETHASONE
     Route: 042
     Dates: start: 20170111, end: 20170324
  5. HERCEPTIN [Suspect]
     Active Substance: TRASTUZUMAB
     Indication: BREAST CANCER
     Route: 042
     Dates: start: 20170111, end: 20170324

REACTIONS (18)
  - Neutropenia [Recovered/Resolved with Sequelae]
  - Pruritus [Unknown]
  - Neurotoxicity [Unknown]
  - Leukopenia [Unknown]
  - Catheter site pruritus [Unknown]
  - Erythema [Recovering/Resolving]
  - Thrombocytopenia [Recovered/Resolved with Sequelae]
  - Staphylococcal sepsis [Recovered/Resolved with Sequelae]
  - Nail discolouration [Unknown]
  - Corneal bleeding [Unknown]
  - Atrial fibrillation [Unknown]
  - Catheter site erythema [Unknown]
  - Hypokalaemic syndrome [Recovered/Resolved with Sequelae]
  - Anaemia [Recovered/Resolved with Sequelae]
  - Paronychia [Unknown]
  - Off label use [Unknown]
  - Oedema [Unknown]
  - Skin burning sensation [Recovering/Resolving]

NARRATIVE: CASE EVENT DATE: 20170217
